FAERS Safety Report 8363829-3 (Version None)
Quarter: 2012Q2

REPORT INFORMATION
  Report Type: 
  Country: None (occurrence: None)
  Receive Date: 20120514
  Receipt Date: 20120430
  Transmission Date: 20120825
  Serious: Yes (Other)
  Sender: FDA-Public Use
  Company Number: US-1191935

PATIENT
  Age: 70 Year
  Sex: Female
  Weight: 53.5244 kg

DRUGS (2)
  1. XALATAN [Concomitant]
  2. TIMOLOL MALEATE [Suspect]
     Dosage: (OPHTHALMIC)
     Route: 047

REACTIONS (8)
  - PARALYSIS [None]
  - AFFECTIVE DISORDER [None]
  - EMOTIONAL POVERTY [None]
  - MUSCLE DISORDER [None]
  - SENSORY DISTURBANCE [None]
  - MUSCLE TIGHTNESS [None]
  - VISUAL ACUITY REDUCED [None]
  - EYELID OEDEMA [None]
